FAERS Safety Report 20874321 (Version 1)
Quarter: 2022Q2

REPORT INFORMATION
  Report Type: Spontaneous
  Country: IE (occurrence: IE)
  Receive Date: 20220525
  Receipt Date: 20220525
  Transmission Date: 20220721
  Serious: Yes (Hospitalization)
  Sender: FDA-Public Use
  Company Number: IE-BAYER-2022A071838

PATIENT
  Sex: Male

DRUGS (3)
  1. NUBEQA [Suspect]
     Active Substance: DAROLUTAMIDE
     Indication: Hormone-refractory prostate cancer
     Dosage: 600 MG, BID
     Dates: start: 202205
  2. NUBEQA [Suspect]
     Active Substance: DAROLUTAMIDE
     Indication: Hormone-refractory prostate cancer
     Dosage: 300 MG, BID
     Dates: start: 202205
  3. TRIPTORELIN [Concomitant]
     Active Substance: TRIPTORELIN
     Dosage: EITHER 3 MONTHLY OR 6 MONTHLY
     Route: 030

REACTIONS (2)
  - Tachycardia [None]
  - Incorrect dose administered [None]

NARRATIVE: CASE EVENT DATE: 20220501
